FAERS Safety Report 10145581 (Version 2)
Quarter: 2014Q2

REPORT INFORMATION
  Report Type: Report from Study
  Country: CA (occurrence: CA)
  Receive Date: 20140501
  Receipt Date: 20140630
  Transmission Date: 20141212
  Serious: Yes (Life-Threatening)
  Sender: FDA-Public Use
  Company Number: CA-JNJFOC-20140420271

PATIENT
  Age: 28 Year
  Sex: Female
  Weight: 100.6 kg

DRUGS (15)
  1. REMICADE [Suspect]
     Indication: RHEUMATOID ARTHRITIS
     Route: 042
     Dates: start: 20140429
  2. REMICADE [Suspect]
     Indication: RHEUMATOID ARTHRITIS
     Route: 042
     Dates: start: 20140305
  3. REMICADE [Suspect]
     Indication: PSORIATIC ARTHROPATHY
     Route: 042
     Dates: start: 20140429
  4. REMICADE [Suspect]
     Indication: PSORIATIC ARTHROPATHY
     Route: 042
     Dates: start: 20140305
  5. ATIVAN [Concomitant]
     Route: 065
  6. OXYCODONE [Concomitant]
     Route: 065
  7. ZOLOFT [Concomitant]
     Route: 065
  8. TRAZODONE [Concomitant]
     Route: 065
  9. CALCIUM CARBONATE [Concomitant]
     Route: 065
  10. CLONAZEPAM [Concomitant]
     Route: 065
  11. VENLAFAXINE [Concomitant]
     Route: 065
  12. SERTRALINE [Concomitant]
     Route: 065
  13. SEROQUEL [Concomitant]
     Route: 065
  14. INSULIN ISOPHANE [Concomitant]
     Route: 065
  15. VITAMIN [Concomitant]
     Route: 065

REACTIONS (4)
  - Infusion related reaction [Recovered/Resolved]
  - Flushing [Recovered/Resolved]
  - Nausea [Recovered/Resolved]
  - Vomiting [Recovered/Resolved]
